FAERS Safety Report 25775976 (Version 1)
Quarter: 2025Q3

REPORT INFORMATION
  Report Type: Spontaneous
  Country: US (occurrence: US)
  Receive Date: 20250909
  Receipt Date: 20250909
  Transmission Date: 20251020
  Serious: No
  Sender: APOTEX
  Company Number: US-APOTEX-2025AP029498

PATIENT

DRUGS (3)
  1. OFLOXACIN [Suspect]
     Active Substance: OFLOXACIN
     Indication: Postoperative care
     Dosage: 1 GTT DROPS, QID
     Route: 047
     Dates: start: 202508
  2. PREDNISOLONE ACETATE [Concomitant]
     Active Substance: PREDNISOLONE ACETATE
     Indication: Infection
     Dosage: 1 GTT DROPS, QID
     Route: 047
  3. MELOXICAM [Concomitant]
     Active Substance: MELOXICAM
     Indication: Arthritis
     Dosage: 7.5 MILLIGRAM, QD
     Route: 065

REACTIONS (2)
  - Eye swelling [Unknown]
  - Ocular hyperaemia [Unknown]

NARRATIVE: CASE EVENT DATE: 20250801
